FAERS Safety Report 6824786-1 (Version None)
Quarter: 2010Q3

REPORT INFORMATION
  Report Type: 
  Country: None (occurrence: None)
  Receive Date: 20100708
  Receipt Date: 20061122
  Transmission Date: 20110219
  Serious: No
  Sender: FDA-Public Use
  Company Number: US-PFIZER INC-2006140240

PATIENT
  Sex: Female
  Weight: 58.06 kg

DRUGS (4)
  1. CHANTIX [Suspect]
     Dates: start: 20061109
  2. TOPROL-XL [Concomitant]
  3. ACETYLSALICYLIC ACID [Concomitant]
  4. VYTORIN [Concomitant]

REACTIONS (5)
  - AGITATION [None]
  - ANXIETY [None]
  - FATIGUE [None]
  - INSOMNIA [None]
  - PALPITATIONS [None]
